FAERS Safety Report 15437228 (Version 4)
Quarter: 2018Q4

REPORT INFORMATION
  Report Type: Report from Study
  Country: US (occurrence: US)
  Receive Date: 20180927
  Receipt Date: 20181108
  Transmission Date: 20190204
  Serious: Yes (Other)
  Sender: FDA-Public Use
  Company Number: US-CLOVIS ONCOLOGY-CLO-2018-001326

PATIENT
  Sex: Female

DRUGS (2)
  1. RUBRACA [Suspect]
     Active Substance: RUCAPARIB CAMSYLATE
     Dosage: 600 MG, BID
     Route: 065
     Dates: start: 20180920
  2. RUBRACA [Suspect]
     Active Substance: RUCAPARIB CAMSYLATE
     Indication: OVARIAN CANCER
     Dosage: 600 MG, BID
     Route: 048
     Dates: start: 201808

REACTIONS (8)
  - Fatigue [Recovering/Resolving]
  - Lung infection [Not Recovered/Not Resolved]
  - Nausea [Not Recovered/Not Resolved]
  - Haematuria [Unknown]
  - Malaise [Not Recovered/Not Resolved]
  - Dysgeusia [Unknown]
  - Nephrolithiasis [Recovered/Resolved]
  - Anxiety [Not Recovered/Not Resolved]

NARRATIVE: CASE EVENT DATE: 2018
